FAERS Safety Report 20967170 (Version 1)
Quarter: 2022Q2

REPORT INFORMATION
  Report Type: Spontaneous
  Country: US (occurrence: US)
  Receive Date: 20220616
  Receipt Date: 20220616
  Transmission Date: 20220721
  Serious: No
  Sender: FDA-Public Use
  Company Number: US-BRISTOL-MYERS SQUIBB COMPANY-2022-047901

PATIENT
  Age: 66 Year
  Sex: Female

DRUGS (13)
  1. POMALYST [Suspect]
     Active Substance: POMALIDOMIDE
     Indication: Plasma cell myeloma
     Dosage: 21 DAYS THEN TAKE 7 DAYS OFF.
     Route: 048
  2. LASIX OXYCODONE [Concomitant]
  3. HYDROCHLORIDE FAMOTIDINE [Concomitant]
  4. HYDROCHLOROTHIAZIDE [Concomitant]
     Active Substance: HYDROCHLOROTHIAZIDE
  5. METOPROLOL TARTRATE [Concomitant]
     Active Substance: METOPROLOL TARTRATE
  6. PANTOPRAZOLE [Concomitant]
     Active Substance: PANTOPRAZOLE
  7. POTASSIUM CHLORIDE ER ASPIRIN [Concomitant]
  8. BUDESONIDE [Concomitant]
     Active Substance: BUDESONIDE
  9. DEXILANT [Concomitant]
     Active Substance: DEXLANSOPRAZOLE
  10. ACYCLOVIR [Concomitant]
     Active Substance: ACYCLOVIR
  11. AMLODIPINE [Concomitant]
     Active Substance: AMLODIPINE BESYLATE
  12. DEXAMETHASONE [Concomitant]
     Active Substance: DEXAMETHASONE
  13. PROLIA [Concomitant]
     Active Substance: DENOSUMAB

REACTIONS (6)
  - White blood cell count decreased [Unknown]
  - Cough [Unknown]
  - Nasopharyngitis [Unknown]
  - Wheezing [Unknown]
  - Decreased appetite [Unknown]
  - Sputum discoloured [Unknown]
